FAERS Safety Report 5722999-3 (Version None)
Quarter: 2008Q2

REPORT INFORMATION
  Report Type: 
  Country: None (occurrence: None)
  Receive Date: 20080430
  Receipt Date: 20080417
  Transmission Date: 20081010
  Serious: Yes (Other)
  Sender: FDA-Public Use
  Company Number: CH-BAYER-CH-2007-042751

PATIENT
  Age: 25 Year
  Sex: Female
  Weight: 72 kg

DRUGS (1)
  1. YASMIN [Suspect]
     Route: 048
     Dates: start: 20060608, end: 20070630

REACTIONS (4)
  - ABDOMINAL PAIN [None]
  - METRORRHAGIA [None]
  - PLACENTAL INSUFFICIENCY [None]
  - PREGNANCY ON ORAL CONTRACEPTIVE [None]
